FAERS Safety Report 17065879 (Version 5)
Quarter: 2020Q4

REPORT INFORMATION
  Report Type: Report from Study
  Country: US (occurrence: US)
  Receive Date: 20191122
  Receipt Date: 20201015
  Transmission Date: 20210113
  Serious: Yes (Other)
  Sender: FDA-Public Use
  Company Number: NVSC2019US044624

PATIENT
  Sex: Male

DRUGS (1)
  1. GILENYA [Suspect]
     Active Substance: FINGOLIMOD HYDROCHLORIDE
     Indication: MULTIPLE SCLEROSIS
     Dosage: 0.5 MG, QD
     Route: 048
     Dates: start: 20191016

REACTIONS (7)
  - JC polyomavirus test positive [Unknown]
  - Memory impairment [Unknown]
  - Hypoaesthesia [Unknown]
  - Amnesia [Unknown]
  - Cerebral disorder [Unknown]
  - Multiple sclerosis [Unknown]
  - Chest pain [Recovered/Resolved]
